FAERS Safety Report 8313038-9 (Version None)
Quarter: 2012Q2

REPORT INFORMATION
  Report Type: 
  Country: None (occurrence: None)
  Receive Date: 20120426
  Receipt Date: 20120418
  Transmission Date: 20120825
  Serious: Yes (Hospitalization)
  Sender: FDA-Public Use
  Company Number: US-BAYER-2011-084577

PATIENT
  Age: 28 Year
  Sex: Female
  Weight: 108.84 kg

DRUGS (9)
  1. YAZ [Suspect]
     Indication: CONTRACEPTION
     Dosage: UNK
     Dates: start: 20080101, end: 20080101
  2. YAZ [Suspect]
     Indication: MENSTRUAL CYCLE MANAGEMENT
  3. ZOLPIDEM TARTRATE [Concomitant]
     Dosage: 10 MG, UNK
     Dates: start: 20090501
  4. HYDROCODONE BITARTRATE AND ACETAMINOPHEN [Concomitant]
     Dosage: UNK
     Dates: start: 20090601
  5. YAZ [Suspect]
     Indication: MENSTRUATION IRREGULAR
  6. PHENADOZ [Concomitant]
     Dosage: 25 MG, UNK
     Dates: start: 20090601
  7. AMBIEN [Concomitant]
     Indication: INSOMNIA
     Dosage: UNK
     Dates: start: 20080101, end: 20100101
  8. NAPROXEN [Concomitant]
     Dosage: 500 MG, UNK
     Dates: start: 20090601
  9. PROPOXYP NAP/APAP 100/650 MG [Concomitant]
     Dosage: UNK
     Dates: start: 20090701

REACTIONS (5)
  - CHOLECYSTITIS CHRONIC [None]
  - INJURY [None]
  - CHOLELITHIASIS [None]
  - PAIN [None]
  - FEAR [None]
